FAERS Safety Report 13450610 (Version 1)
Quarter: 2017Q2

REPORT INFORMATION
  Report Type: Spontaneous
  Country: US (occurrence: US)
  Receive Date: 20170418
  Receipt Date: 20170418
  Transmission Date: 20170830
  Serious: No
  Sender: FDA-Public Use
  Company Number: US-TEVA-743227ACC

PATIENT
  Sex: Female

DRUGS (1)
  1. BUPROPION HCL ER (SR DEP) [Suspect]
     Active Substance: BUPROPION HYDROCHLORIDE

REACTIONS (4)
  - Eczema [Unknown]
  - Rash [Unknown]
  - Therapy change [None]
  - Reaction to drug excipients [None]
